FAERS Safety Report 8390904-X (Version None)
Quarter: 2012Q2

REPORT INFORMATION
  Report Type: 
  Country: None (occurrence: None)
  Receive Date: 20120515
  Receipt Date: 20120508
  Transmission Date: 20120825
  Serious: Yes (Life-Threatening, Hospitalization, Disabling, Other)
  Sender: FDA-Public Use
  Company Number: DSA_56311_2012

PATIENT
  Sex: Female
  Weight: 54.4316 kg

DRUGS (4)
  1. KLONOPIN [Concomitant]
  2. CELEXA [Concomitant]
  3. LIBRIUM /60011501/ [Concomitant]
  4. XENAZINE [Suspect]
     Indication: HUNTINGTON'S DISEASE
     Dosage: (DF ORAL)
     Route: 048
     Dates: start: 20120101

REACTIONS (7)
  - HALLUCINATION [None]
  - DYSARTHRIA [None]
  - PSYCHOTIC DISORDER [None]
  - DEPRESSION [None]
  - DYSPHAGIA [None]
  - FALL [None]
  - CEREBELLAR SYNDROME [None]
